FAERS Safety Report 16974769 (Version 1)
Quarter: 2019Q4

REPORT INFORMATION
  Report Type: Spontaneous
  Country: US (occurrence: US)
  Receive Date: 20190913
  Receipt Date: 20190913
  Transmission Date: 20200122
  Serious: No
  Sender: FDA-Public Use
  Company Number: None

PATIENT
  Age: 85 Year
  Sex: Female
  Weight: 79.83 kg

DRUGS (4)
  1. DELTASONE [Suspect]
     Active Substance: PREDNISONE
     Indication: ADVERSE DRUG REACTION
     Dosage: ?          QUANTITY:2 PILLS;?
     Route: 048
     Dates: start: 20190812, end: 20190812
  2. DELTASONE [Suspect]
     Active Substance: PREDNISONE
     Indication: NAIL OPERATION
     Dosage: ?          QUANTITY:2 PILLS;?
     Route: 048
     Dates: start: 20190812, end: 20190812
  3. DELTASONE [Suspect]
     Active Substance: PREDNISONE
     Indication: RASH ERYTHEMATOUS
     Dosage: ?          QUANTITY:2 PILLS;?
     Route: 048
     Dates: start: 20190812, end: 20190812
  4. DELTASONE [Suspect]
     Active Substance: PREDNISONE
     Indication: APPLICATION SITE RASH
     Dosage: ?          QUANTITY:2 PILLS;?
     Route: 048
     Dates: start: 20190812, end: 20190812

REACTIONS (4)
  - Heart rate increased [None]
  - Blood pressure systolic increased [None]
  - Blood pressure diastolic increased [None]
  - Palpitations [None]

NARRATIVE: CASE EVENT DATE: 20190812
